FAERS Safety Report 6397602-2 (Version None)
Quarter: 2009Q4

REPORT INFORMATION
  Report Type: 
  Country: None (occurrence: None)
  Receive Date: 20091012
  Receipt Date: 20090930
  Transmission Date: 20100525
  Serious: Yes (Other)
  Sender: FDA-Public Use
  Company Number: PHHY2009LU19978

PATIENT
  Age: 68 Year
  Sex: Male

DRUGS (1)
  1. GLEEVEC [Suspect]
     Indication: DESMOID TUMOUR
     Dosage: 800 MG DAILY
     Route: 048
     Dates: start: 20070101

REACTIONS (2)
  - ANAL SPHINCTER ATONY [None]
  - DIARRHOEA [None]
